FAERS Safety Report 8882412 (Version 2)
Quarter: 2012Q4

REPORT INFORMATION
  Report Type: 
  Country: US (occurrence: US)
  Receive Date: 20121102
  Receipt Date: 20121210
  Transmission Date: 20130627
  Serious: Yes (Other)
  Sender: FDA-Public Use
  Company Number: US-PFIZER INC-2012273209

PATIENT
  Age: 65 Year
  Sex: Male
  Weight: 83.9 kg

DRUGS (6)
  1. GABAPENTIN [Suspect]
     Indication: FIBROMYALGIA
     Dosage: 300 mg, two or three times a day
     Dates: start: 201210
  2. CYMBALTA [Suspect]
     Indication: FIBROMYALGIA
     Dosage: 60 mg, 2x/day
     Dates: start: 2012
  3. HYZAAR [Concomitant]
     Indication: BLOOD PRESSURE HIGH
     Dosage: 50/12.5 mg, daily
     Route: 048
  4. DICLOFENAC [Concomitant]
     Indication: ARTHRITIS
     Dosage: 75 mg, 2x/day
  5. LYRICA [Concomitant]
     Indication: FIBROMYALGIA
     Dosage: 75 mg, 2x/day
     Route: 048
     Dates: start: 201210
  6. LYRICA [Concomitant]
     Indication: NEUROMYOPATHY

REACTIONS (5)
  - Back disorder [Unknown]
  - Neuropathy peripheral [Recovering/Resolving]
  - Paraesthesia [Recovering/Resolving]
  - Hypoaesthesia [Recovering/Resolving]
  - Drug administration error [Unknown]
